FAERS Safety Report 5656230-4 (Version None)
Quarter: 2008Q1

REPORT INFORMATION
  Report Type: 
  Country: None (occurrence: None)
  Receive Date: 20080305
  Receipt Date: 20080220
  Transmission Date: 20080703
  Serious: Yes (Hospitalization)
  Sender: FDA-Public Use
  Company Number: DSA_31499_2008

PATIENT
  Age: 34 Year
  Sex: Female

DRUGS (5)
  1. LORAZEPAM [Suspect]
     Dosage: (3 MG 1X ORAL)
     Route: 048
     Dates: start: 20080220, end: 20080220
  2. ATOSIL /00133602/ (ATOSIL - ISOPROMETHIAZINE HYDROCHLORIDE) [Suspect]
     Dosage: (200 MG 1X ORAL)
     Route: 048
     Dates: start: 20080220, end: 20080220
  3. DOMINAL /00018902/ (DOMINAL - PROTHIPENDYL HYDROCHLORIDE) [Suspect]
     Dosage: (80 MG 1X ORAL)
     Route: 048
     Dates: start: 20080220, end: 20080220
  4. SEROQUEL [Suspect]
     Dosage: (4500 MG 1X ORAL)
     Route: 048
     Dates: start: 20080220, end: 20080220
  5. TRICYCLIC ANTIDEPRESSANTS [Concomitant]

REACTIONS (5)
  - ANTIDEPRESSANT DRUG LEVEL INCREASED [None]
  - FATIGUE [None]
  - INTENTIONAL OVERDOSE [None]
  - SOMNOLENCE [None]
  - TACHYCARDIA [None]
